FAERS Safety Report 16861958 (Version 3)
Quarter: 2020Q3

REPORT INFORMATION
  Report Type: Spontaneous
  Country: US (occurrence: US)
  Receive Date: 20190927
  Receipt Date: 20200713
  Transmission Date: 20201102
  Serious: Yes (Hospitalization, Other)
  Sender: FDA-Public Use
  Company Number: US-ASTRAZENECA-2019SF36597

PATIENT
  Age: 19093 Day
  Sex: Male
  Weight: 106.8 kg

DRUGS (60)
  1. FARXIGA [Suspect]
     Active Substance: DAPAGLIFLOZIN PROPANEDIOL
     Indication: TYPE 2 DIABETES MELLITUS
     Dosage: 30 PILLS10.0MG UNKNOWN
     Route: 048
     Dates: start: 20180707
  2. FARXIGA [Suspect]
     Active Substance: DAPAGLIFLOZIN PROPANEDIOL
     Indication: WEIGHT DECREASED
     Dosage: 30 PILLS10.0MG UNKNOWN
     Route: 048
     Dates: start: 20180707
  3. FARXIGA [Suspect]
     Active Substance: DAPAGLIFLOZIN PROPANEDIOL
     Indication: BLOOD PRESSURE ABNORMAL
     Dosage: 90 PILLS10.0MG UNKNOWN
     Route: 048
     Dates: start: 20180802
  4. FARXIGA [Suspect]
     Active Substance: DAPAGLIFLOZIN PROPANEDIOL
     Indication: TYPE 2 DIABETES MELLITUS
     Dosage: UNKNOWN
     Route: 048
     Dates: start: 20141125
  5. FARXIGA [Suspect]
     Active Substance: DAPAGLIFLOZIN PROPANEDIOL
     Indication: BLOOD GLUCOSE DECREASED
     Dosage: UNKNOWN
     Route: 048
     Dates: start: 20180905
  6. SULFAMETHOXAZOLE [Concomitant]
     Active Substance: SULFAMETHOXAZOLE
     Dates: start: 20150817
  7. TRETINOIN. [Concomitant]
     Active Substance: TRETINOIN
     Dates: start: 20180513
  8. TRAMADOL. [Concomitant]
     Active Substance: TRAMADOL
     Dates: start: 20180904
  9. HEPARIN [Concomitant]
     Active Substance: HEPARIN SODIUM
  10. MORPHINE [Concomitant]
     Active Substance: MORPHINE
  11. TRILIPIX [Concomitant]
     Active Substance: FENOFIBRIC ACID
     Route: 065
  12. TRAZODONE [Concomitant]
     Active Substance: TRAZODONE HYDROCHLORIDE
     Route: 065
  13. FARXIGA [Suspect]
     Active Substance: DAPAGLIFLOZIN PROPANEDIOL
     Indication: BLOOD GLUCOSE DECREASED
     Route: 048
     Dates: start: 20141006
  14. LANTUS [Concomitant]
     Active Substance: INSULIN GLARGINE
     Dates: start: 20130423
  15. GLIPIZIDE. [Concomitant]
     Active Substance: GLIPIZIDE
     Dates: start: 20180910
  16. VANCOMYCIN [Concomitant]
     Active Substance: VANCOMYCIN
  17. NOVOLOG [Concomitant]
     Active Substance: INSULIN ASPART
  18. ACETAMINOPHEN. [Concomitant]
     Active Substance: ACETAMINOPHEN
  19. DICYCLOMINE [Concomitant]
     Active Substance: DICYCLOMINE HYDROCHLORIDE
     Dates: start: 20131226
  20. PREDNISONE. [Concomitant]
     Active Substance: PREDNISONE
     Dates: start: 20150817
  21. ZANAFLEX [Concomitant]
     Active Substance: TIZANIDINE HYDROCHLORIDE
  22. DICLOFENAC SODIUM. [Concomitant]
     Active Substance: DICLOFENAC SODIUM
  23. CLOBEX [Concomitant]
     Active Substance: CLOBETASOL PROPIONATE
     Route: 065
  24. FARXIGA [Suspect]
     Active Substance: DAPAGLIFLOZIN PROPANEDIOL
     Indication: WEIGHT DECREASED
     Route: 048
     Dates: start: 20141006
  25. FARXIGA [Suspect]
     Active Substance: DAPAGLIFLOZIN PROPANEDIOL
     Indication: BLOOD GLUCOSE DECREASED
     Dosage: UNKNOWN
     Route: 048
     Dates: start: 20141125
  26. FARXIGA [Suspect]
     Active Substance: DAPAGLIFLOZIN PROPANEDIOL
     Indication: TYPE 2 DIABETES MELLITUS
     Dosage: UNKNOWN
     Route: 048
     Dates: start: 20180905
  27. FARXIGA [Suspect]
     Active Substance: DAPAGLIFLOZIN PROPANEDIOL
     Indication: WEIGHT DECREASED
     Dosage: UNKNOWN
     Route: 048
     Dates: start: 20180905
  28. METFORMIN [Concomitant]
     Active Substance: METFORMIN HYDROCHLORIDE
     Dates: start: 20130401
  29. TAMSULOSIN [Concomitant]
     Active Substance: TAMSULOSIN
     Dates: start: 20180513
  30. TORADOL [Concomitant]
     Active Substance: KETOROLAC TROMETHAMINE
  31. OXYCODONE [Concomitant]
     Active Substance: OXYCODONE
  32. TRICOR [Concomitant]
     Active Substance: FENOFIBRATE
     Route: 065
  33. FARXIGA [Suspect]
     Active Substance: DAPAGLIFLOZIN PROPANEDIOL
     Indication: BLOOD PRESSURE ABNORMAL
     Route: 048
     Dates: start: 20141006
  34. FARXIGA [Suspect]
     Active Substance: DAPAGLIFLOZIN PROPANEDIOL
     Indication: BLOOD GLUCOSE DECREASED
     Dosage: 30 PILLS10.0MG UNKNOWN
     Route: 048
     Dates: start: 20180707
  35. FARXIGA [Suspect]
     Active Substance: DAPAGLIFLOZIN PROPANEDIOL
     Indication: BLOOD PRESSURE ABNORMAL
     Dosage: 30 PILLS10.0MG UNKNOWN
     Route: 048
     Dates: start: 20180707
  36. FARXIGA [Suspect]
     Active Substance: DAPAGLIFLOZIN PROPANEDIOL
     Indication: TYPE 2 DIABETES MELLITUS
     Dosage: 90 PILLS10.0MG UNKNOWN
     Route: 048
     Dates: start: 20180802
  37. ALPRAZOLAM. [Concomitant]
     Active Substance: ALPRAZOLAM
     Dates: start: 20130724
  38. HYDROMORPHONE [Concomitant]
     Active Substance: HYDROMORPHONE
  39. FARXIGA [Suspect]
     Active Substance: DAPAGLIFLOZIN PROPANEDIOL
     Indication: WEIGHT DECREASED
     Dosage: 90 PILLS10.0MG UNKNOWN
     Route: 048
     Dates: start: 20180802
  40. FARXIGA [Suspect]
     Active Substance: DAPAGLIFLOZIN PROPANEDIOL
     Indication: BLOOD GLUCOSE DECREASED
     Dosage: 90 PILLS10.0MG UNKNOWN
     Route: 048
     Dates: start: 20180802
  41. METOPROLOL. [Concomitant]
     Active Substance: METOPROLOL
     Dates: start: 20130523
  42. ATORVASTATIN [Concomitant]
     Active Substance: ATORVASTATIN
     Dates: start: 20131204
  43. TRULICITY [Concomitant]
     Active Substance: DULAGLUTIDE
     Dates: start: 20150613
  44. DIPHENHYDRAMINE. [Concomitant]
     Active Substance: DIPHENHYDRAMINE
  45. GLIMEPIRIDE. [Concomitant]
     Active Substance: GLIMEPIRIDE
     Route: 065
  46. FARXIGA [Suspect]
     Active Substance: DAPAGLIFLOZIN PROPANEDIOL
     Indication: TYPE 2 DIABETES MELLITUS
     Route: 048
     Dates: start: 20141006
  47. VITAMIN D2 [Concomitant]
     Active Substance: ERGOCALCIFEROL
     Dates: start: 20140602
  48. CEPHALEXIN. [Concomitant]
     Active Substance: CEPHALEXIN
     Dates: start: 20180908
  49. AMPICILLIN [Concomitant]
     Active Substance: AMPICILLIN
     Route: 065
  50. FARXIGA [Suspect]
     Active Substance: DAPAGLIFLOZIN PROPANEDIOL
     Indication: WEIGHT DECREASED
     Dosage: UNKNOWN
     Route: 048
     Dates: start: 20141125
  51. FARXIGA [Suspect]
     Active Substance: DAPAGLIFLOZIN PROPANEDIOL
     Indication: BLOOD PRESSURE ABNORMAL
     Dosage: UNKNOWN
     Route: 048
     Dates: start: 20141125
  52. FARXIGA [Suspect]
     Active Substance: DAPAGLIFLOZIN PROPANEDIOL
     Indication: BLOOD PRESSURE ABNORMAL
     Dosage: UNKNOWN
     Route: 048
     Dates: start: 20180905
  53. AMLODIPINE [Concomitant]
     Active Substance: AMLODIPINE BESYLATE
     Dates: start: 20131128
  54. VICTOZA [Concomitant]
     Active Substance: LIRAGLUTIDE
     Dates: start: 20140715
  55. BYDUREON [Concomitant]
     Active Substance: EXENATIDE
     Dates: start: 20141003
  56. BENZONATATE. [Concomitant]
     Active Substance: BENZONATATE
     Dates: start: 20150106
  57. RANITIDIN [Concomitant]
     Active Substance: RANITIDINE HYDROCHLORIDE
     Dates: start: 20150817
  58. BELLADONNA OPIUM [Concomitant]
  59. PHENAZOPYRIDINE. [Concomitant]
     Active Substance: PHENAZOPYRIDINE
  60. ONDANSETRON [Concomitant]
     Active Substance: ONDANSETRON

REACTIONS (6)
  - Cellulitis [Unknown]
  - Scrotal abscess [Unknown]
  - Sepsis [Unknown]
  - Abscess [Unknown]
  - Fournier^s gangrene [Unknown]
  - Necrotising soft tissue infection [Unknown]

NARRATIVE: CASE EVENT DATE: 20180905
